FAERS Safety Report 25414875 (Version 2)
Quarter: 2025Q3

REPORT INFORMATION
  Report Type: Spontaneous
  Country: JP (occurrence: JP)
  Receive Date: 20250609
  Receipt Date: 20250825
  Transmission Date: 20251021
  Serious: Yes (Other)
  Sender: ASTELLAS
  Company Number: JP-ASTELLAS-2025-AER-024989

PATIENT
  Age: 75 Year
  Sex: Male

DRUGS (2)
  1. VYLOY [Suspect]
     Active Substance: ZOLBETUXIMAB-CLZB
     Indication: Gastric cancer
     Route: 042
  2. VYLOY [Suspect]
     Active Substance: ZOLBETUXIMAB-CLZB
     Route: 042
     Dates: start: 20250507, end: 20250507

REACTIONS (3)
  - Adrenal insufficiency [Unknown]
  - Nausea [Unknown]
  - Nausea [Unknown]

NARRATIVE: CASE EVENT DATE: 20250514
